FAERS Safety Report 8157319-0 (Version None)
Quarter: 2012Q1

REPORT INFORMATION
  Report Type: 
  Country: None (occurrence: None)
  Receive Date: 20120222
  Receipt Date: 20120213
  Transmission Date: 20120608
  Serious: Yes (Hospitalization)
  Sender: FDA-Public Use
  Company Number: DE-ABBOTT-12P-062-0903972-00

PATIENT
  Sex: Male

DRUGS (1)
  1. HUMIRA [Suspect]
     Indication: CROHN'S DISEASE
     Route: 058
     Dates: start: 20111214, end: 20120130

REACTIONS (5)
  - ABDOMINAL HERNIA [None]
  - OSTEITIS [None]
  - COLITIS ULCERATIVE [None]
  - GASTROINTESTINAL INFLAMMATION [None]
  - ENTEROSTOMY [None]
